FAERS Safety Report 12124235 (Version 1)
Quarter: 2016Q1

REPORT INFORMATION
  Report Type: Spontaneous
  Country: DE (occurrence: DE)
  Receive Date: 20160228
  Receipt Date: 20160228
  Transmission Date: 20160526
  Serious: Yes (Other)
  Sender: FDA-Public Use
  Company Number: DE-ROCHE-1715218

PATIENT
  Age: 12 Year
  Sex: Male

DRUGS (1)
  1. NUTROPIN AQ [Suspect]
     Active Substance: SOMATROPIN
     Indication: GROWTH HORMONE DEFICIENCY
     Dosage: FORM STRENGTH WAS 10MG/2ML
     Route: 058
     Dates: start: 20100927

REACTIONS (1)
  - Osteochondrosis [Recovering/Resolving]

NARRATIVE: CASE EVENT DATE: 20151117
